FAERS Safety Report 8517985-4 (Version None)
Quarter: 2012Q3

REPORT INFORMATION
  Report Type: 
  Country: None (occurrence: None)
  Receive Date: 20120718
  Receipt Date: 20120710
  Transmission Date: 20120928
  Serious: Yes (Hospitalization, Other)
  Sender: FDA-Public Use
  Company Number: US-ASTELLAS-2012US005183

PATIENT
  Sex: Female
  Weight: 68 kg

DRUGS (2)
  1. ERLOTINIB HYDROCHLORIDE [Suspect]
     Indication: NON-SMALL CELL LUNG CANCER
     Dosage: 150 MG, UID/QD
     Route: 048
     Dates: start: 20120501, end: 20120530
  2. ERLOTINIB HYDROCHLORIDE [Suspect]
     Dosage: 25 MG, UID/QD
     Route: 048

REACTIONS (7)
  - RASH [None]
  - DIARRHOEA [None]
  - ARTHRALGIA [None]
  - BONE PAIN [None]
  - MYALGIA [None]
  - VULVOVAGINAL PAIN [None]
  - VOMITING [None]
